FAERS Safety Report 14685671 (Version 4)
Quarter: 2018Q2

REPORT INFORMATION
  Report Type: Spontaneous
  Country: US (occurrence: US)
  Receive Date: 20180327
  Receipt Date: 20180419
  Transmission Date: 20180711
  Serious: Yes (Hospitalization, Other)
  Sender: FDA-Public Use
  Company Number: US-PFIZER INC-2014213778

PATIENT
  Age: 21 Month
  Sex: Female

DRUGS (6)
  1. EPINEPHRINE. [Suspect]
     Active Substance: EPINEPHRINE
     Indication: ANAPHYLACTIC REACTION
     Dosage: 0.01 MG/KG, UNK (DURING A PERIOD OF TWENTY MINUTES)
     Route: 042
  2. NORMAL SALINE [Concomitant]
     Active Substance: SODIUM CHLORIDE
     Indication: HYPOTENSION
     Dosage: UNK (20 ML/KG, THREE BOLUSES)
     Route: 040
  3. EPINEPHRINE. [Suspect]
     Active Substance: EPINEPHRINE
     Dosage: 1 UG/KG PER MIN, UNK (CONTINUOUS INFUSION)
     Route: 041
  4. EPINEPHRINE. [Suspect]
     Active Substance: EPINEPHRINE
     Indication: HYPOTENSION
     Dosage: 0.01 MG/KG, UNK (DURING A PERIOD OF TWENTY MINUTES)
     Route: 042
  5. EPINEPHRINE. [Suspect]
     Active Substance: EPINEPHRINE
     Indication: RESPIRATORY DISTRESS
     Dosage: 0.01 MG/KG, UNK (ONE DOSE, DURING A PERIOD OF TWENTY MINUTES)
     Route: 030
  6. RACEMIC EPINEPHRINE [Concomitant]
     Active Substance: RACEPINEPHRINE
     Indication: RESPIRATORY DISTRESS
     Dosage: UNK (NEBULIZATION OVER A PERIOD OF TWENTY MINUTES)

REACTIONS (1)
  - Cardiomyopathy [Recovering/Resolving]
